FAERS Safety Report 19790551 (Version 1)
Quarter: 2021Q3

REPORT INFORMATION
  Report Type: Other
  Country: HR (occurrence: HR)
  Receive Date: 20210906
  Receipt Date: 20210906
  Transmission Date: 20211014
  Serious: Yes (Death)
  Sender: FDA-Public Use
  Company Number: HR-ROCHE-2901887

PATIENT
  Age: 48 Year
  Sex: Male

DRUGS (5)
  1. SULFAMETHOXAZOLE/TRIMETHOPRIM [Concomitant]
     Active Substance: SULFAMETHOXAZOLE\TRIMETHOPRIM
  2. VALGANCICLOVIR. [Concomitant]
     Active Substance: VALGANCICLOVIR
  3. MYCOPHENOLATE MOFETIL. [Suspect]
     Active Substance: MYCOPHENOLATE MOFETIL
     Indication: RENAL TRANSPLANT
     Route: 065
  4. TACROLIMUS. [Suspect]
     Active Substance: TACROLIMUS
     Indication: RENAL TRANSPLANT
     Route: 065
  5. EVEROLIMUS. [Concomitant]
     Active Substance: EVEROLIMUS

REACTIONS (1)
  - Skin squamous cell carcinoma metastatic [Fatal]
